FAERS Safety Report 5039379-9 (Version None)
Quarter: 2006Q2

REPORT INFORMATION
  Report Type: 
  Country: None (occurrence: None)
  Receive Date: 20060623
  Receipt Date: 20060606
  Transmission Date: 20061013
  Serious: Yes (Other)
  Sender: FDA-Public Use
  Company Number: US200606001769

PATIENT
  Age: 81 Year
  Sex: Male

DRUGS (5)
  1. HUMULIN R [Suspect]
     Indication: DIABETES MELLITUS
     Dosage: AS NEEDED
     Dates: start: 20060405
  2. LANTUS [Concomitant]
  3. LIPITOR [Concomitant]
  4. ALTACE [Concomitant]
  5. PLAVIX [Concomitant]

REACTIONS (3)
  - BLOOD GLUCOSE DECREASED [None]
  - EYE HAEMORRHAGE [None]
  - PHARMACEUTICAL PRODUCT COMPLAINT [None]
